FAERS Safety Report 20881742 (Version 1)
Quarter: 2022Q2

REPORT INFORMATION
  Report Type: Report from Study
  Country: PR (occurrence: PR)
  Receive Date: 20220527
  Receipt Date: 20220527
  Transmission Date: 20220721
  Serious: Yes (Hospitalization)
  Sender: FDA-Public Use
  Company Number: PR-ABBVIE-22K-131-4412313-00

PATIENT
  Sex: Female
  Weight: 101.24 kg

DRUGS (6)
  1. HUMIRA [Suspect]
     Active Substance: ADALIMUMAB
     Indication: Rheumatoid arthritis
     Route: 058
  2. HUMIRA [Suspect]
     Active Substance: ADALIMUMAB
     Indication: Rheumatoid arthritis
     Route: 058
     Dates: start: 20150901
  3. ELASOMERAN [Concomitant]
     Active Substance: ELASOMERAN
     Indication: COVID-19 immunisation
     Dosage: 1ST DOSE
     Route: 030
     Dates: start: 20210324, end: 20210324
  4. ELASOMERAN [Concomitant]
     Active Substance: ELASOMERAN
     Dosage: 2ND DOSE
     Route: 030
     Dates: start: 20210421, end: 20210421
  5. ELASOMERAN [Concomitant]
     Active Substance: ELASOMERAN
     Dosage: 3RD DOSE
     Route: 030
     Dates: start: 20210820, end: 20210820
  6. ELASOMERAN [Concomitant]
     Active Substance: ELASOMERAN
     Dosage: 4TH DOSE
     Route: 030
     Dates: start: 20220503, end: 20220503

REACTIONS (3)
  - Lung disorder [Recovered/Resolved]
  - COVID-19 [Unknown]
  - Pain in extremity [Not Recovered/Not Resolved]

NARRATIVE: CASE EVENT DATE: 20210101
